FAERS Safety Report 8578624-X (Version None)
Quarter: 2012Q3

REPORT INFORMATION
  Report Type: 
  Country: None (occurrence: None)
  Receive Date: 20120808
  Receipt Date: 20120731
  Transmission Date: 20120928
  Serious: Yes (Hospitalization)
  Sender: FDA-Public Use
  Company Number: JP-ASTELLAS-2012JP007327

PATIENT
  Sex: Male
  Weight: 56 kg

DRUGS (8)
  1. URIEF [Concomitant]
     Indication: BENIGN PROSTATIC HYPERPLASIA
     Dosage: 80 MG, UNKNOWN/D
     Route: 048
  2. LASIX [Concomitant]
     Indication: RENAL IMPAIRMENT
     Dosage: 80 MG, UNKNOWN/D
     Route: 048
  3. DIGOXIN [Concomitant]
     Indication: CARDIAC FAILURE CHRONIC
     Dosage: 0.12 MG, UNKNOWN/D
     Route: 048
  4. ALLOPURINOL [Concomitant]
     Indication: HYPERURICAEMIA
     Dosage: 100 MG, UNKNOWN/D
     Route: 048
  5. MIRABEGRON [Suspect]
     Indication: HYPERTONIC BLADDER
     Dosage: 50 MG, UID/QD
     Route: 048
     Dates: start: 20120703, end: 20120712
  6. WARFARIN SODIUM [Concomitant]
     Indication: CARDIAC FAILURE CHRONIC
     Dosage: 1 MG, UNKNOWN/D
     Route: 048
  7. DUTASTERIDE [Concomitant]
     Indication: BENIGN PROSTATIC HYPERPLASIA
     Dosage: 0.5 MG, UID/QD
     Route: 048
  8. CANDESARTAN CILEXETIL [Concomitant]
     Indication: HYPERTENSION
     Dosage: 4 MG, UNKNOWN/D
     Route: 048

REACTIONS (1)
  - CARDIAC FAILURE [None]
